FAERS Safety Report 11762725 (Version 1)
Quarter: 2015Q4

REPORT INFORMATION
  Report Type: Other
  Country: US (occurrence: US)
  Receive Date: 20151120
  Receipt Date: 20151120
  Transmission Date: 20160304
  Serious: Yes (Other)
  Sender: FDA-Public Use
  Company Number: US-SHIRE-US-001992

PATIENT
  Sex: Female

DRUGS (4)
  1. COUMADIN [Concomitant]
     Active Substance: WARFARIN SODIUM
     Indication: PRODUCT USED FOR UNKNOWN INDICATION
     Dosage: UNK
  2. PARENTERAL [Concomitant]
     Indication: NUTRITIONAL SUPPLEMENTATION
     Dosage: UNK
  3. GATTEX [Suspect]
     Active Substance: TEDUGLUTIDE\WATER
     Indication: SHORT-BOWEL SYNDROME
     Dosage: UNK
     Route: 058
     Dates: start: 20141112
  4. VICODIN [Concomitant]
     Active Substance: ACETAMINOPHEN\HYDROCODONE BITARTRATE
     Indication: ABDOMINAL PAIN
     Dosage: 5/325 MG, 2 TIMES A DAY

REACTIONS (13)
  - Headache [Recovered/Resolved]
  - Therapeutic response increased [Recovered/Resolved]
  - Throat tightness [Recovered/Resolved]
  - Injection site bruising [Unknown]
  - International normalised ratio increased [Unknown]
  - Depressed level of consciousness [Recovered/Resolved]
  - Amnesia [Recovered/Resolved]
  - Nausea [Unknown]
  - Chest pain [Recovered/Resolved]
  - Eye pain [Recovered/Resolved]
  - Vomiting [Unknown]
  - Confusional state [Recovered/Resolved]
  - Abdominal pain [Unknown]

NARRATIVE: CASE EVENT DATE: 2015
